FAERS Safety Report 8358497-0 (Version None)
Quarter: 2012Q2

REPORT INFORMATION
  Report Type: 
  Country: None (occurrence: None)
  Receive Date: 20120514
  Receipt Date: 20120511
  Transmission Date: 20120825
  Serious: Yes (Other)
  Sender: FDA-Public Use
  Company Number: ES-PFIZER INC-2012032446

PATIENT
  Age: 42 Year
  Sex: Female

DRUGS (2)
  1. LYRICA [Suspect]
     Indication: SCIATICA
     Dosage: 25 MG, 4X/DAY
     Route: 048
     Dates: start: 20110401, end: 20110501
  2. LYRICA [Suspect]
     Indication: INTERVERTEBRAL DISC PROTRUSION
     Dosage: 300 MG, 1X/DAY
     Route: 048
     Dates: start: 20110501, end: 20110801

REACTIONS (6)
  - DEPRESSION [None]
  - AMNESIA [None]
  - FATIGUE [None]
  - INTERVERTEBRAL DISC PROTRUSION [None]
  - BRADYPHRENIA [None]
  - SOMNOLENCE [None]
